FAERS Safety Report 7795742-4 (Version None)
Quarter: 2011Q4

REPORT INFORMATION
  Report Type: 
  Country: None (occurrence: None)
  Receive Date: 20111004
  Receipt Date: 20110928
  Transmission Date: 20120403
  Serious: Yes (Other)
  Sender: FDA-Public Use
  Company Number: FR-PFIZER INC-2011230621

PATIENT
  Age: 41 Year
  Sex: Female

DRUGS (3)
  1. ZITHROMAX [Suspect]
     Dosage: 500 MG, 1X/DAY
     Route: 048
     Dates: start: 20110908, end: 20110911
  2. IVABRADINE [Interacting]
     Dosage: UNK
     Dates: start: 20110916
  3. IVABRADINE [Interacting]
     Dosage: 10 MG, 1X/DAY
     Route: 048
     Dates: end: 20110911

REACTIONS (3)
  - EXTRASYSTOLES [None]
  - BRADYCARDIA [None]
  - DRUG INTERACTION [None]
